FAERS Safety Report 14835465 (Version 2)
Quarter: 2018Q2

REPORT INFORMATION
  Report Type: Spontaneous
  Country: US (occurrence: US)
  Receive Date: 20180502
  Receipt Date: 20180510
  Transmission Date: 20180711
  Serious: Yes (Other)
  Sender: FDA-Public Use
  Company Number: US-ROCHE-2109994

PATIENT
  Age: 29 Year
  Weight: 68.1 kg

DRUGS (1)
  1. ERIVEDGE [Suspect]
     Active Substance: VISMODEGIB
     Indication: BASAL CELL CARCINOMA
     Dosage: ONGOING:NO
     Route: 048
     Dates: start: 201406, end: 2015

REACTIONS (13)
  - Weight bearing difficulty [Recovered/Resolved]
  - Ill-defined disorder [Recovered/Resolved]
  - Pain [Recovered/Resolved]
  - Hair colour changes [Not Recovered/Not Resolved]
  - Injury [Not Recovered/Not Resolved]
  - Muscle spasms [Recovered/Resolved]
  - Hair texture abnormal [Not Recovered/Not Resolved]
  - Arthropathy [Recovered/Resolved]
  - Alopecia [Unknown]
  - Fatigue [Unknown]
  - Deformity [Not Recovered/Not Resolved]
  - Chemical burn [Not Recovered/Not Resolved]
  - Hair growth abnormal [Not Recovered/Not Resolved]

NARRATIVE: CASE EVENT DATE: 201406
